FAERS Safety Report 19041925 (Version 1)
Quarter: 2021Q1

REPORT INFORMATION
  Report Type: Spontaneous
  Country: US (occurrence: US)
  Receive Date: 20210322
  Receipt Date: 20210322
  Transmission Date: 20210420
  Serious: No
  Sender: FDA-Public Use
  Company Number: US-TAKEDA-2021TUS017101

PATIENT
  Age: 67 Year
  Sex: Female
  Weight: 71.2 kg

DRUGS (2)
  1. LIALDA [Suspect]
     Active Substance: MESALAMINE
     Indication: COLITIS
  2. LIALDA [Suspect]
     Active Substance: MESALAMINE
     Indication: CROHN^S DISEASE
     Dosage: 4 TABLET, 1.2 GRAM, QD
     Route: 065

REACTIONS (8)
  - Drug ineffective [Unknown]
  - Sinus disorder [Unknown]
  - Nail disorder [Unknown]
  - Cerebral disorder [Unknown]
  - Alopecia [Unknown]
  - Arthralgia [Recovered/Resolved]
  - Musculoskeletal pain [Unknown]
  - Weight increased [Unknown]

NARRATIVE: CASE EVENT DATE: 20210314
